FAERS Safety Report 25572575 (Version 6)
Quarter: 2025Q4

REPORT INFORMATION
  Report Type: Report from Study
  Country: US (occurrence: US)
  Receive Date: 20250717
  Receipt Date: 20251113
  Transmission Date: 20260118
  Serious: Yes (Hospitalization, Other)
  Sender: BAYER HEALTHCARE LLC
  Company Number: US-BAYER-2025A091195

PATIENT
  Age: 72 Year
  Sex: Female
  Weight: 86.168 kg

DRUGS (25)
  1. ADEMPAS [Suspect]
     Active Substance: RIOCIGUAT
     Indication: Pulmonary arterial hypertension
     Dosage: UNK
     Dates: start: 20240408
  2. ADEMPAS [Suspect]
     Active Substance: RIOCIGUAT
     Indication: Pulmonary arterial hypertension
     Dosage: 2.5 MG, TID
     Route: 048
  3. ADEMPAS [Suspect]
     Active Substance: RIOCIGUAT
     Indication: Pulmonary arterial hypertension
     Dosage: 1.5 MG, TID
     Route: 048
  4. ADEMPAS [Suspect]
     Active Substance: RIOCIGUAT
     Indication: Pulmonary arterial hypertension
     Dosage: 2.5 MG, TID
     Route: 048
  5. ADEMPAS [Suspect]
     Active Substance: RIOCIGUAT
     Indication: Pulmonary arterial hypertension
     Dosage: 2.5 MG, TID
     Route: 048
  6. ADEMPAS [Suspect]
     Active Substance: RIOCIGUAT
     Indication: Pulmonary arterial hypertension
     Dosage: 1 MG, TID
     Route: 048
     Dates: start: 20251024
  7. ASPIRIN [Suspect]
     Active Substance: ASPIRIN
  8. WARFARIN SODIUM [Suspect]
     Active Substance: WARFARIN SODIUM
  9. COLACE [Concomitant]
     Active Substance: DOCUSATE SODIUM
  10. METFORMIN HYDROCHLORIDE [Concomitant]
     Active Substance: METFORMIN HYDROCHLORIDE
  11. DULOXETINE HYDROCHLORIDE [Concomitant]
     Active Substance: DULOXETINE HYDROCHLORIDE
  12. OPSUMIT [Concomitant]
     Active Substance: MACITENTAN
  13. LEXAPRO [Concomitant]
     Active Substance: ESCITALOPRAM OXALATE
  14. ATORVASTATIN CALCIUM [Concomitant]
     Active Substance: ATORVASTATIN CALCIUM
  15. GABAPENTIN [Concomitant]
     Active Substance: GABAPENTIN
  16. DOXYCYCLINE HYCLATE [Concomitant]
     Active Substance: DOXYCYCLINE HYCLATE
  17. PREDNISONE [Concomitant]
     Active Substance: PREDNISONE
  18. OXYGEN [Concomitant]
     Active Substance: OXYGEN
  19. IBUPROFEN [Concomitant]
     Active Substance: IBUPROFEN
  20. FUROSEMIDE [Concomitant]
     Active Substance: FUROSEMIDE
  21. INVOKANA [Concomitant]
     Active Substance: CANAGLIFLOZIN
  22. CARVEDILOL [Concomitant]
     Active Substance: CARVEDILOL
  23. LOSARTAN POTASSIUM [Concomitant]
     Active Substance: LOSARTAN POTASSIUM
  24. POTASSIUM CHLORIDE [Concomitant]
     Active Substance: POTASSIUM CHLORIDE
  25. MUCINEX [Concomitant]
     Active Substance: GUAIFENESIN

REACTIONS (12)
  - Gastric haemorrhage [None]
  - Cardiac failure congestive [Not Recovered/Not Resolved]
  - Fluid retention [None]
  - Blood loss anaemia [None]
  - Pneumonia [Not Recovered/Not Resolved]
  - Hypotension [Not Recovered/Not Resolved]
  - Sepsis [None]
  - Peripheral swelling [None]
  - Hypotension [Not Recovered/Not Resolved]
  - Drug intolerance [None]
  - Blood pressure fluctuation [None]
  - Product dose omission issue [None]

NARRATIVE: CASE EVENT DATE: 20250101
